FAERS Safety Report 5295488-0 (Version None)
Quarter: 2007Q2

REPORT INFORMATION
  Report Type: 
  Country: None (occurrence: None)
  Receive Date: 20070406
  Receipt Date: 20070320
  Transmission Date: 20071010
  Serious: Yes (Hospitalization)
  Sender: FDA-Public Use
  Company Number: A03200702343

PATIENT
  Age: 51 Year
  Sex: Female

DRUGS (2)
  1. AMBIEN [Suspect]
     Indication: INSOMNIA
     Dosage: ORAL
     Route: 048
     Dates: start: 20010101
  2. LAMOTRIGINE [Concomitant]

REACTIONS (3)
  - ABNORMAL SLEEP-RELATED EVENT [None]
  - EMOTIONAL DISORDER [None]
  - PAIN [None]
